FAERS Safety Report 8041062-2 (Version None)
Quarter: 2012Q1

REPORT INFORMATION
  Report Type: 
  Country: None (occurrence: None)
  Receive Date: 20120109
  Receipt Date: 20120103
  Transmission Date: 20120608
  Serious: Yes (Other)
  Sender: FDA-Public Use
  Company Number: 2011MA017427

PATIENT
  Age: 35 Year
  Sex: Female
  Weight: 57.15 kg

DRUGS (3)
  1. FINASTERIDE [Suspect]
     Indication: MATERNAL EXPOSURE DURING PREGNANCY
     Dosage: X1
  2. FINASTERIDE [Suspect]
     Indication: ACCIDENTAL EXPOSURE
     Dosage: X1
  3. FOLIC ACID [Concomitant]

REACTIONS (5)
  - ACCIDENTAL EXPOSURE [None]
  - WRONG TECHNIQUE IN DRUG USAGE PROCESS [None]
  - MATERNAL EXPOSURE DURING PREGNANCY [None]
  - INCORRECT ROUTE OF DRUG ADMINISTRATION [None]
  - TABLET PHYSICAL ISSUE [None]
